FAERS Safety Report 7776488-5 (Version None)
Quarter: 2011Q3

REPORT INFORMATION
  Report Type: 
  Country: None (occurrence: None)
  Receive Date: 20110922
  Receipt Date: 20110922
  Transmission Date: 20111222
  Serious: Yes (Death)
  Sender: FDA-Public Use
  Company Number: None

PATIENT
  Sex: Female
  Weight: 60.782 kg

DRUGS (5)
  1. AVASTIN [Suspect]
     Indication: NON-SMALL CELL LUNG CANCER
     Dosage: IV
     Route: 042
     Dates: start: 20100701
  2. AVASTIN [Suspect]
     Indication: NON-SMALL CELL LUNG CANCER
     Dosage: IV
     Route: 042
     Dates: start: 20110401
  3. AVASTIN [Suspect]
     Indication: NON-SMALL CELL LUNG CANCER
     Dosage: IV
     Route: 042
     Dates: start: 20110501
  4. ARIXTRA [Suspect]
     Indication: THROMBOSIS
     Dosage: SQ
     Route: 058
     Dates: start: 20110601
  5. ARIXTRA [Suspect]
     Indication: THROMBOSIS
     Dosage: SQ
     Route: 058
     Dates: start: 20110531

REACTIONS (12)
  - MALAISE [None]
  - BACK PAIN [None]
  - PAIN IN EXTREMITY [None]
  - DYSARTHRIA [None]
  - DEPRESSED LEVEL OF CONSCIOUSNESS [None]
  - THROMBOSIS [None]
  - VOMITING [None]
  - FACIAL PARESIS [None]
  - CONFUSIONAL STATE [None]
  - HEADACHE [None]
  - NAUSEA [None]
  - HAEMORRHAGE INTRACRANIAL [None]
